FAERS Safety Report 11777742 (Version 1)
Quarter: 2015Q4

REPORT INFORMATION
  Report Type: Spontaneous
  Country: US (occurrence: US)
  Receive Date: 20151125
  Receipt Date: 20151125
  Transmission Date: 20160304
  Serious: Yes (Other)
  Sender: FDA-Public Use
  Company Number: US-PFIZER INC-2015403394

PATIENT
  Sex: Male

DRUGS (1)
  1. CHAPSTICK ULTRA SPF 30 [Suspect]
     Active Substance: OCTINOXATE\OCTISALATE\OCTOCRYLENE\OXYBENZONE\PETROLATUM
     Indication: DRY SKIN

REACTIONS (3)
  - Malignant melanoma [Unknown]
  - Product use issue [Unknown]
  - Pre-existing condition improved [Unknown]
